FAERS Safety Report 9769310 (Version 1)
Quarter: 2013Q4

REPORT INFORMATION
  Report Type: Spontaneous
  Country: US (occurrence: None)
  Receive Date: 20131204
  Receipt Date: 20131204
  Transmission Date: 20140711
  Serious: Yes (Hospitalization)
  Sender: FDA-Public Use
  Company Number: 44667

PATIENT
  Sex: Female

DRUGS (1)
  1. GLASSIA [Suspect]
     Indication: ALPHA-1 ANTI-TRYPSIN DEFICIENCY
     Route: 042

REACTIONS (3)
  - Productive cough [None]
  - Sputum discoloured [None]
  - Oxygen saturation decreased [None]
